FAERS Safety Report 24075658 (Version 2)
Quarter: 2024Q3

REPORT INFORMATION
  Report Type: Spontaneous
  Country: AR (occurrence: AR)
  Receive Date: 20240710
  Receipt Date: 20240717
  Transmission Date: 20241016
  Serious: Yes (Hospitalization)
  Sender: BIOMARIN
  Company Number: AR-SA-SAC20240704001279

PATIENT

DRUGS (2)
  1. LARONIDASE [Suspect]
     Active Substance: LARONIDASE
     Indication: Mucopolysaccharidosis I
     Dosage: 3 (UNITS NOT PROVIDED), Q15D
     Route: 042
     Dates: start: 20220526
  2. LARONIDASE [Suspect]
     Active Substance: LARONIDASE
     Dosage: 3 (UNITS NOT PROVIDED), QW
     Route: 042
     Dates: start: 2024

REACTIONS (4)
  - Hepatomegaly [Not Recovered/Not Resolved]
  - Abdominal pain upper [Not Recovered/Not Resolved]
  - Disease progression [Unknown]
  - Off label use [Unknown]

NARRATIVE: CASE EVENT DATE: 20220526
